FAERS Safety Report 7270578-1 (Version None)
Quarter: 2011Q1

REPORT INFORMATION
  Report Type: 
  Country: None (occurrence: None)
  Receive Date: 20110202
  Receipt Date: 20110124
  Transmission Date: 20110831
  Serious: Yes (Other)
  Sender: FDA-Public Use
  Company Number: US-ASTRAZENECA-2011SE04419

PATIENT
  Age: 50 Year
  Sex: Male

DRUGS (4)
  1. TOPROL-XL [Suspect]
     Route: 048
  2. SYMBICORT [Suspect]
     Indication: CHRONIC OBSTRUCTIVE PULMONARY DISEASE
     Dosage: 80/4.5 MCG 2 PUFFS BID
     Route: 055
  3. BREATHING TREATMENTS [Concomitant]
  4. XANAX [Concomitant]

REACTIONS (3)
  - LUNG NEOPLASM [None]
  - DRUG DOSE OMISSION [None]
  - CHEST PAIN [None]
